FAERS Safety Report 8136485-7 (Version None)
Quarter: 2012Q1

REPORT INFORMATION
  Report Type: 
  Country: None (occurrence: None)
  Receive Date: 20120214
  Receipt Date: 20120131
  Transmission Date: 20120608
  Serious: Yes (Other)
  Sender: FDA-Public Use
  Company Number: US-UCBSA-050780

PATIENT
  Sex: Female

DRUGS (1)
  1. KEPPRA [Suspect]
     Dosage: 750 PER DAY

REACTIONS (3)
  - UMBILICAL CORD SHORT [None]
  - FOETAL DEATH [None]
  - PREGNANCY [None]
